FAERS Safety Report 6178513-4 (Version None)
Quarter: 2009Q2

REPORT INFORMATION
  Report Type: 
  Country: None (occurrence: None)
  Receive Date: 20090430
  Receipt Date: 20090430
  Transmission Date: 20091009
  Serious: Yes (Other)
  Sender: FDA-Public Use
  Company Number: 200919009GPV

PATIENT
  Age: 45 Year
  Sex: Male

DRUGS (16)
  1. FLUDARABINE PHOSPHATE [Suspect]
     Indication: MANTLE CELL LYMPHOMA
     Dosage: ORAL; ORAL; ORAL; ORAL; ORAL
     Route: 048
  2. FLUDARABINE PHOSPHATE [Suspect]
     Indication: MANTLE CELL LYMPHOMA
     Dosage: ORAL; ORAL; ORAL; ORAL; ORAL
     Route: 048
  3. FLUDARABINE PHOSPHATE [Suspect]
     Indication: MANTLE CELL LYMPHOMA
     Dosage: ORAL; ORAL; ORAL; ORAL; ORAL
     Route: 048
  4. FLUDARABINE PHOSPHATE [Suspect]
     Indication: MANTLE CELL LYMPHOMA
     Dosage: ORAL; ORAL; ORAL; ORAL; ORAL
     Route: 048
  5. FLUDARABINE PHOSPHATE [Suspect]
     Indication: MANTLE CELL LYMPHOMA
     Dosage: ORAL; ORAL; ORAL; ORAL; ORAL
     Route: 048
  6. CYCLOPHOSPHAMIDE [Suspect]
     Indication: MANTLE CELL LYMPHOMA
     Dosage: ORAL; ORAL; ORAL; ORAL; ORAL
     Route: 048
  7. CYCLOPHOSPHAMIDE [Suspect]
     Indication: MANTLE CELL LYMPHOMA
     Dosage: ORAL; ORAL; ORAL; ORAL; ORAL
     Route: 048
  8. CYCLOPHOSPHAMIDE [Suspect]
     Indication: MANTLE CELL LYMPHOMA
     Dosage: ORAL; ORAL; ORAL; ORAL; ORAL
     Route: 048
  9. CYCLOPHOSPHAMIDE [Suspect]
     Indication: MANTLE CELL LYMPHOMA
     Dosage: ORAL; ORAL; ORAL; ORAL; ORAL
     Route: 048
  10. CYCLOPHOSPHAMIDE [Suspect]
     Indication: MANTLE CELL LYMPHOMA
     Dosage: ORAL; ORAL; ORAL; ORAL; ORAL
     Route: 048
  11. RITUXIMAB (RITUXIMAB) [Suspect]
     Indication: MANTLE CELL LYMPHOMA
  12. RITUXIMAB (RITUXIMAB) [Suspect]
     Indication: MANTLE CELL LYMPHOMA
  13. RITUXIMAB (RITUXIMAB) [Suspect]
     Indication: MANTLE CELL LYMPHOMA
  14. RITUXIMAB (RITUXIMAB) [Suspect]
     Indication: MANTLE CELL LYMPHOMA
  15. CYCLOPHOSPHAMIDE [Concomitant]
  16. GRANULOCYTE COLONY STIMULATING FACTOR (GRANULOCYTE COLONY STIMULATING [Concomitant]

REACTIONS (2)
  - BLOOD STEM CELL HARVEST FAILURE [None]
  - OFF LABEL USE [None]
